FAERS Safety Report 10021126 (Version 1)
Quarter: 2014Q1

REPORT INFORMATION
  Report Type: Spontaneous
  Country: US (occurrence: US)
  Receive Date: 20140319
  Receipt Date: 20140319
  Transmission Date: 20141002
  Serious: No
  Sender: FDA-Public Use
  Company Number: US-PFIZER INC-2014076928

PATIENT
  Sex: Female

DRUGS (2)
  1. SOMAVERT [Suspect]
     Dosage: 10 MG, UNK
  2. SANDOSTATIN LAR [Suspect]
     Dosage: UNK

REACTIONS (1)
  - Blood bilirubin increased [Unknown]
